FAERS Safety Report 17967655 (Version 1)
Quarter: 2020Q2

REPORT INFORMATION
  Report Type: Spontaneous
  Country: US (occurrence: US)
  Receive Date: 20200630
  Receipt Date: 20200630
  Transmission Date: 20200714
  Serious: Yes (Death)
  Sender: FDA-Public Use
  Company Number: None

PATIENT
  Age: 45 Year
  Sex: Female

DRUGS (1)
  1. POMALYST [Suspect]
     Active Substance: POMALIDOMIDE
     Indication: PLASMA CELL LEUKAEMIA
     Route: 048
     Dates: start: 20190321

REACTIONS (9)
  - Acute kidney injury [None]
  - Renal tubular necrosis [None]
  - Thrombocytopenia [None]
  - Anaemia [None]
  - General physical health deterioration [None]
  - Septic shock [None]
  - Clostridium test positive [None]
  - Streptococcal infection [None]
  - Stomatococcal infection [None]

NARRATIVE: CASE EVENT DATE: 20200526
